FAERS Safety Report 13471997 (Version 1)
Quarter: 2017Q2

REPORT INFORMATION
  Report Type: Spontaneous
  Country: NL (occurrence: NL)
  Receive Date: 20170424
  Receipt Date: 20170424
  Transmission Date: 20170830
  Serious: Yes (Other)
  Sender: FDA-Public Use
  Company Number: NL-SUN PHARMACEUTICAL INDUSTRIES LTD-2016RR-125849

PATIENT
  Age: 20 Year
  Sex: Male

DRUGS (10)
  1. PENFLURIDOL [Suspect]
     Active Substance: PENFLURIDOL
     Indication: SCHIZOPHRENIA
     Route: 065
  2. PIMOZIDE. [Suspect]
     Active Substance: PIMOZIDE
     Indication: SCHIZOPHRENIA
  3. RISPERIDONE. [Suspect]
     Active Substance: RISPERIDONE
     Indication: DELUSION
  4. LEVOMEPROMAZINE [Suspect]
     Active Substance: LEVOMEPROMAZINE
     Indication: SCHIZOPHRENIA
     Route: 065
  5. RISPERIDONE. [Suspect]
     Active Substance: RISPERIDONE
     Indication: SCHIZOPHRENIA
     Route: 065
  6. PIMOZIDE. [Suspect]
     Active Substance: PIMOZIDE
     Indication: DELUSION
     Route: 065
  7. LEVOMEPROMAZINE [Suspect]
     Active Substance: LEVOMEPROMAZINE
     Indication: DELUSION
  8. OLANZAPINE. [Suspect]
     Active Substance: OLANZAPINE
     Indication: SCHIZOPHRENIA
     Route: 065
  9. PENFLURIDOL [Suspect]
     Active Substance: PENFLURIDOL
     Indication: DELUSION
  10. OLANZAPINE. [Suspect]
     Active Substance: OLANZAPINE
     Indication: DELUSION

REACTIONS (4)
  - Cognitive disorder [Unknown]
  - Cogwheel rigidity [Recovering/Resolving]
  - Akathisia [Unknown]
  - Drug effect incomplete [Unknown]
